FAERS Safety Report 10265828 (Version 1)
Quarter: 2014Q2

REPORT INFORMATION
  Report Type: Spontaneous
  Country: JP (occurrence: JP)
  Receive Date: 20140627
  Receipt Date: 20140627
  Transmission Date: 20141212
  Serious: Yes (Hospitalization)
  Sender: FDA-Public Use
  Company Number: JP-GLAXOSMITHKLINE-B0987368A

PATIENT
  Age: 19 Year
  Sex: Female

DRUGS (5)
  1. LAMICTAL [Suspect]
     Indication: BIPOLAR DISORDER
     Dosage: 25MG PER DAY
     Route: 048
     Dates: start: 20140318, end: 20140324
  2. LAMICTAL [Suspect]
     Indication: BIPOLAR DISORDER
     Dosage: 25MG TWICE PER DAY
     Route: 048
     Dates: start: 20140325, end: 20140410
  3. CYMBALTA [Concomitant]
     Dosage: 60MG PER DAY
     Route: 048
     Dates: start: 20140120, end: 20140410
  4. SULPIRIDE [Concomitant]
     Dosage: 50MG TWICE PER DAY
     Route: 048
     Dates: start: 20140120, end: 20140410
  5. ANTIBIOTICS (UNKNOWN) [Concomitant]
     Route: 048

REACTIONS (5)
  - Drug eruption [Recovering/Resolving]
  - Rash [Recovering/Resolving]
  - Pyrexia [Unknown]
  - Rash [Recovering/Resolving]
  - Inflammation [Unknown]
